FAERS Safety Report 20590432 (Version 1)
Quarter: 2022Q1

REPORT INFORMATION
  Report Type: Report from Study
  Country: PL (occurrence: PL)
  Receive Date: 20220314
  Receipt Date: 20220314
  Transmission Date: 20220423
  Serious: Yes (Hospitalization)
  Sender: FDA-Public Use
  Company Number: PL-CELGENE-POL-20211000248

PATIENT
  Age: 63 Year
  Sex: Female
  Weight: 59 kg

DRUGS (18)
  1. POMALIDOMIDE [Suspect]
     Active Substance: POMALIDOMIDE
     Indication: Plasma cell myeloma
     Dosage: 4 MILLIGRAM
     Route: 048
     Dates: start: 20210915
  2. DEXAMETHASONE [Suspect]
     Active Substance: DEXAMETHASONE
     Indication: Plasma cell myeloma
     Dosage: 20 MILLIGRAM
     Route: 048
     Dates: start: 20210915
  3. DARATUMUMAB [Suspect]
     Active Substance: DARATUMUMAB
     Indication: Plasma cell myeloma
     Dosage: 1 IN 1 DAY ONCE
     Route: 058
     Dates: start: 20210915
  4. CALPEROS [Concomitant]
     Indication: Prophylaxis
     Dosage: 1000 MILLIGRAM
     Route: 048
     Dates: start: 20180201
  5. VITAMIN D3 [Concomitant]
     Active Substance: CHOLECALCIFEROL
     Indication: Prophylaxis
     Route: 048
     Dates: start: 20180201
  6. BISOPROLOL [Concomitant]
     Active Substance: BISOPROLOL
     Indication: Hypertension
     Dosage: 2.5 MILLIGRAM
     Route: 048
     Dates: start: 20210401
  7. CALCIUM CHLORIDE\MAGNESIUM CHLORIDE\POTASSIUM CHLORIDE\SODIUM ACETATE\ [Concomitant]
     Active Substance: CALCIUM CHLORIDE\MAGNESIUM CHLORIDE\POTASSIUM CHLORIDE\SODIUM ACETATE\SODIUM CHLORIDE\SODIUM CITRATE
     Indication: Prophylaxis
     Dosage: 500 MILLILITER
     Route: 041
     Dates: start: 20210913, end: 20210913
  8. CALCIUM CHLORIDE\MAGNESIUM CHLORIDE\POTASSIUM CHLORIDE\SODIUM ACETATE\ [Concomitant]
     Active Substance: CALCIUM CHLORIDE\MAGNESIUM CHLORIDE\POTASSIUM CHLORIDE\SODIUM ACETATE\SODIUM CHLORIDE\SODIUM CITRATE
     Dosage: 1000 MILLILITER
     Route: 041
     Dates: start: 20210914, end: 20210916
  9. Natrium chloratum(Sodium chloride) [Concomitant]
     Indication: Prophylaxis
     Dosage: 0.9% SODIUM CHLORIDE
     Route: 041
     Dates: start: 20210913, end: 20210914
  10. Natrium chloratum(Sodium chloride) [Concomitant]
     Dosage: 0.9% SODIUM CHLORIDE
     Route: 041
     Dates: start: 20210915, end: 20210916
  11. CALCIUM CHLORIDE [Concomitant]
     Active Substance: CALCIUM CHLORIDE
     Indication: Prophylaxis
     Dosage: 1 DOSAGE FORMS
     Route: 041
     Dates: start: 20210913, end: 20210914
  12. allupol(allopurinol) [Concomitant]
     Indication: Prophylaxis
     Dosage: 1200 MICROGRAM
     Route: 048
     Dates: start: 20210913, end: 20210915
  13. allupol(allopurinol) [Concomitant]
     Dosage: 300 MICROGRAM
     Route: 048
     Dates: start: 20210916
  14. magnesium sulfuricum(magnesium sulphate) [Concomitant]
     Indication: Mineral supplementation
     Dosage: 2 MILLILITER
     Route: 041
     Dates: start: 20210914, end: 20210914
  15. controloc(pantoprazole) [Concomitant]
     Indication: Prophylaxis against gastrointestinal ulcer
     Dosage: 20 MILLIGRAM
     Route: 048
     Dates: start: 20210915, end: 20210916
  16. ENOXAPARIN SODIUM [Concomitant]
     Active Substance: ENOXAPARIN SODIUM
     Indication: Thrombosis prophylaxis
     Dosage: 40 MILLIGRAM
     Route: 058
     Dates: start: 20210915, end: 20210916
  17. hascovir(aciclovir) [Concomitant]
     Indication: Antiviral prophylaxis
     Dosage: 1600 MILLIGRAM
     Route: 048
     Dates: start: 20210916
  18. BISEPTOL [Concomitant]
     Active Substance: SULFAMETHOXAZOLE\TRIMETHOPRIM
     Indication: Pneumocystis jirovecii pneumonia
     Route: 065

REACTIONS (1)
  - Respiratory tract infection [Recovered/Resolved]

NARRATIVE: CASE EVENT DATE: 20210919
